FAERS Safety Report 23543136 (Version 1)
Quarter: 2024Q1

REPORT INFORMATION
  Report Type: Spontaneous
  Country: CA (occurrence: CA)
  Receive Date: 20240220
  Receipt Date: 20240220
  Transmission Date: 20240410
  Serious: Yes (Other)
  Sender: FDA-Public Use
  Company Number: CA-TEVA-VS-3158273

PATIENT
  Age: 54 Year
  Sex: Female

DRUGS (4)
  1. METFORMIN HYDROCHLORIDE [Suspect]
     Active Substance: METFORMIN HYDROCHLORIDE
     Route: 048
  2. CODEINE [Concomitant]
     Active Substance: CODEINE
     Route: 065
  3. GLYBURIDE [Concomitant]
     Active Substance: GLYBURIDE
     Route: 065
  4. PERJETA  VIAL -CONCENTRATE SOL. [Concomitant]
     Dosage: DOSAGE FORM: SOLUTION INTRAVENOUS
     Route: 065

REACTIONS (5)
  - Ageusia [Unknown]
  - Cough [Unknown]
  - Diarrhoea [Unknown]
  - Fatigue [Unknown]
  - Oropharyngeal pain [Unknown]
